FAERS Safety Report 8958330 (Version 3)
Quarter: 2013Q1

REPORT INFORMATION
  Report Type: Spontaneous
  Country: CA (occurrence: CA)
  Receive Date: 20121210
  Receipt Date: 20130226
  Transmission Date: 20140127
  Serious: Yes (Hospitalization)
  Sender: FDA-Public Use
  Company Number: CA-GLAXOSMITHKLINE-A1003757A

PATIENT
  Age: 32 Year
  Sex: Male
  Weight: 76 kg

DRUGS (5)
  1. BENLYSTA [Suspect]
     Indication: SYSTEMIC LUPUS ERYTHEMATOSUS
     Dosage: 750MG SEE DOSAGE TEXT
     Route: 042
     Dates: start: 20120120, end: 20121224
  2. PREDNISONE [Concomitant]
     Dosage: 2.5MG PER DAY
     Route: 048
  3. CELLCEPT [Concomitant]
     Dosage: 2.5G PER DAY
     Route: 065
  4. CHLOROQUINE [Concomitant]
     Dosage: 250MG PER DAY
     Route: 048
  5. TYLENOL [Concomitant]

REACTIONS (3)
  - Swelling face [Not Recovered/Not Resolved]
  - Angioedema [Recovered/Resolved]
  - Nonspecific reaction [Unknown]
